FAERS Safety Report 8068618-5 (Version None)
Quarter: 2012Q1

REPORT INFORMATION
  Report Type: 
  Country: None (occurrence: None)
  Receive Date: 20120124
  Receipt Date: 20111114
  Transmission Date: 20120608
  Serious: No
  Sender: FDA-Public Use
  Company Number: US-AMGEN-USASP2011059897

PATIENT
  Age: 72 Year
  Sex: Female

DRUGS (7)
  1. VITAMIN D [Concomitant]
     Dosage: UNK
  2. PROLIA [Suspect]
     Indication: OSTEOPOROSIS
     Dosage: UNK
     Dates: start: 20110524
  3. METFORMIN HCL [Concomitant]
  4. CALCIUM [Concomitant]
     Dosage: UNK
  5. CLONIDINE [Concomitant]
  6. DILAUDID [Concomitant]
  7. LOTREL [Concomitant]

REACTIONS (7)
  - RASH ERYTHEMATOUS [None]
  - DRUG INTERACTION [None]
  - TOOTH DISORDER [None]
  - PAIN IN EXTREMITY [None]
  - VOMITING [None]
  - CHEST DISCOMFORT [None]
  - RASH PRURITIC [None]
